FAERS Safety Report 4900409-3 (Version None)
Quarter: 2006Q1

REPORT INFORMATION
  Report Type: 
  Country: None (occurrence: None)
  Receive Date: 20060203
  Receipt Date: 20060124
  Transmission Date: 20060701
  Serious: Yes (Hospitalization, Congenital Anomaly, Other)
  Sender: FDA-Public Use
  Company Number: DE-JNJFOC-20051101780

PATIENT
  Sex: Female

DRUGS (1)
  1. RISPERDAL [Suspect]
     Indication: DRUG USE FOR UNKNOWN INDICATION

REACTIONS (19)
  - AMNIOTIC CAVITY INFECTION [None]
  - ATRIAL SEPTAL DEFECT [None]
  - CAESAREAN SECTION [None]
  - DEVELOPMENTAL DELAY [None]
  - DRUG EXPOSURE DURING PREGNANCY [None]
  - FOETAL GROWTH RETARDATION [None]
  - GROWTH RETARDATION [None]
  - HYPERTONIA [None]
  - LEUKOPENIA [None]
  - MALNUTRITION [None]
  - MENTAL RETARDATION SEVERITY UNSPECIFIED [None]
  - NEONATAL RESPIRATORY DISTRESS SYNDROME [None]
  - OPISTHOTONUS [None]
  - PATENT DUCTUS ARTERIOSUS [None]
  - PLAGIOCEPHALY [None]
  - PREMATURE BABY [None]
  - STRESS [None]
  - TEMPERATURE REGULATION DISORDER [None]
  - VOMITING [None]
